FAERS Safety Report 9518193 (Version 1)
Quarter: 2013Q3

REPORT INFORMATION
  Report Type: Spontaneous
  Country: RU (occurrence: RU)
  Receive Date: 20130912
  Receipt Date: 20130912
  Transmission Date: 20140515
  Serious: Yes (Other)
  Sender: FDA-Public Use
  Company Number: RU-JNJFOC-20130903823

PATIENT
  Sex: Female
  Weight: 2 kg

DRUGS (5)
  1. DARUNAVIR [Suspect]
     Indication: HIV INFECTION
     Route: 064
     Dates: start: 20101228
  2. RITONAVIR [Suspect]
     Indication: HIV INFECTION
     Route: 064
     Dates: start: 20101228
  3. ABACAVIR + LAMIVUDINE [Suspect]
     Indication: HIV INFECTION
     Route: 064
     Dates: start: 20101228
  4. FOLIC ACID [Concomitant]
     Route: 064
  5. MAGNESIUM VITAMIN B6 [Concomitant]
     Route: 064

REACTIONS (3)
  - Neonatal disorder [Unknown]
  - Premature baby [Unknown]
  - Foetal exposure during pregnancy [Recovered/Resolved]
